FAERS Safety Report 8358826-8 (Version None)
Quarter: 2012Q2

REPORT INFORMATION
  Report Type: 
  Country: None (occurrence: None)
  Receive Date: 20120515
  Receipt Date: 20120510
  Transmission Date: 20120825
  Serious: Yes (Death, Hospitalization)
  Sender: FDA-Public Use
  Company Number: PHHY2012GB039904

PATIENT
  Age: 43 Year
  Sex: Male

DRUGS (6)
  1. PREDNISOLONE [Suspect]
     Indication: VASCULITIS
     Dosage: 60 MG, QD
     Route: 048
  2. CIPROFLOXACIN [Concomitant]
     Indication: MYCOBACTERIUM FORTUITUM INFECTION
     Dosage: 500 MG, BID
  3. CIPROFLOXACIN [Concomitant]
     Dosage: 500 MG, BID
  4. CLARITHROMYCIN [Concomitant]
     Dosage: 500 MG, BID
  5. CYCLOPHOSPHAMIDE [Suspect]
     Indication: VASCULITIS
     Dosage: 100 MG, QD
     Route: 048
  6. CLARITHROMYCIN [Concomitant]
     Indication: MYCOBACTERIUM FORTUITUM INFECTION
     Dosage: 500 MG, BID

REACTIONS (15)
  - RIGHT VENTRICULAR FAILURE [None]
  - DYSPNOEA [None]
  - RENAL FAILURE ACUTE [None]
  - HAEMOPTYSIS [None]
  - RESPIRATORY FAILURE [None]
  - CARDIO-RESPIRATORY ARREST [None]
  - LIVER INJURY [None]
  - ASPERGILLOSIS [None]
  - H1N1 INFLUENZA [None]
  - SEPSIS SYNDROME [None]
  - NEUTROPENIA [None]
  - CHOLESTASIS [None]
  - HALLUCINATION, VISUAL [None]
  - ACID FAST BACILLI INFECTION [None]
  - RENAL IMPAIRMENT [None]
